FAERS Safety Report 5201773-0 (Version None)
Quarter: 2006Q4

REPORT INFORMATION
  Report Type: 
  Country: None (occurrence: None)
  Receive Date: 20061013
  Receipt Date: 20060530
  Transmission Date: 20070319
  Serious: Yes (Other)
  Sender: FDA-Public Use
  Company Number: 2006-06-0100

PATIENT
  Sex: Male

DRUGS (1)
  1. SALBUTAMOL SULPHATE ORAL AEROSOL [Suspect]
     Indication: ASTHMA
     Dosage: ORAL AER INH
     Route: 055

REACTIONS (2)
  - ASTHMA [None]
  - TREMOR [None]
